FAERS Safety Report 6998605-7 (Version None)
Quarter: 2010Q3

REPORT INFORMATION
  Report Type: 
  Country: None (occurrence: None)
  Receive Date: 20100920
  Receipt Date: 20070607
  Transmission Date: 20110219
  Serious: Yes (Hospitalization)
  Sender: FDA-Public Use
  Company Number: US-ASTRAZENECA-2006UW11619

PATIENT
  Age: 15742 Day
  Sex: Male
  Weight: 112 kg

DRUGS (10)
  1. SEROQUEL [Suspect]
     Dosage: 25 MG  - 100 MG
     Route: 048
     Dates: start: 20050720, end: 20060425
  2. GEODON [Concomitant]
  3. DEPAKOTE [Concomitant]
     Dosage: 250 - 1000 MG
     Dates: start: 20030818
  4. SONATA [Concomitant]
     Route: 048
     Dates: start: 20000902
  5. LEXAPRO [Concomitant]
     Dosage: 10 - 20 MG
     Dates: start: 20060206
  6. TRAMADOL HCL [Concomitant]
     Route: 048
     Dates: start: 20051125
  7. AVELOX [Concomitant]
     Dates: start: 20030114
  8. NEURONTIN [Concomitant]
     Dosage: 300 - 1600 MG
     Route: 048
     Dates: start: 20030114
  9. LISINOPRIL [Concomitant]
     Dates: start: 20021125
  10. GALANTAMINE HYDROBROMIDE [Concomitant]
     Dates: start: 20030114

REACTIONS (3)
  - DIABETES MELLITUS [None]
  - DIABETES MELLITUS INADEQUATE CONTROL [None]
  - TYPE 1 DIABETES MELLITUS [None]
